FAERS Safety Report 12681941 (Version 2)
Quarter: 2016Q3

REPORT INFORMATION
  Report Type: Spontaneous
  Country: US (occurrence: US)
  Receive Date: 20160824
  Receipt Date: 20160913
  Transmission Date: 20161109
  Serious: Yes (Other)
  Sender: FDA-Public Use
  Company Number: US-PFIZER INC-2016392998

PATIENT
  Age: 53 Year
  Sex: Female

DRUGS (1)
  1. LIPITOR [Suspect]
     Active Substance: ATORVASTATIN CALCIUM
     Dosage: 40 MG, UNK (QTY 60 / DAY SUPPLY 30)

REACTIONS (5)
  - Cerebrovascular accident [Unknown]
  - Choking [Unknown]
  - Oropharyngeal pain [Unknown]
  - Dysphagia [Unknown]
  - Odynophagia [Unknown]
